FAERS Safety Report 18116372 (Version 1)
Quarter: 2020Q3

REPORT INFORMATION
  Report Type: Report from Study
  Country: None (occurrence: US)
  Receive Date: 20200806
  Receipt Date: 20200806
  Transmission Date: 20201103
  Serious: Yes (Hospitalization, Other)
  Sender: FDA-Public Use
  Company Number: US-ABBVIE-20K-163-3502523-00

PATIENT
  Sex: Male
  Weight: 66.28 kg

DRUGS (12)
  1. DICYCLOMINE [Concomitant]
     Active Substance: DICYCLOMINE HYDROCHLORIDE
     Indication: DEFAECATION URGENCY
  2. ALENDRONATE SODIUM. [Concomitant]
     Active Substance: ALENDRONATE SODIUM
     Indication: BONE DISORDER
  3. TAMSULOSIN [Concomitant]
     Active Substance: TAMSULOSIN
     Indication: PROSTATOMEGALY
  4. HUMIRA [Suspect]
     Active Substance: ADALIMUMAB
     Route: 058
     Dates: start: 202004, end: 202007
  5. FINASTERIDE. [Concomitant]
     Active Substance: FINASTERIDE
     Indication: PROSTATOMEGALY
  6. HYDROCORTISONE. [Concomitant]
     Active Substance: HYDROCORTISONE
     Indication: COLITIS ULCERATIVE
     Route: 054
  7. HUMIRA [Suspect]
     Active Substance: ADALIMUMAB
     Route: 058
     Dates: start: 2018, end: 202004
  8. HUMIRA [Suspect]
     Active Substance: ADALIMUMAB
     Route: 058
     Dates: start: 202007
  9. PREDNISONE. [Concomitant]
     Active Substance: PREDNISONE
     Indication: COLITIS ULCERATIVE
  10. ATORVASTATIN [Concomitant]
     Active Substance: ATORVASTATIN
     Indication: ADJUVANT THERAPY
  11. HUMIRA [Suspect]
     Active Substance: ADALIMUMAB
     Indication: COLITIS ULCERATIVE
     Route: 058
     Dates: start: 201610, end: 2018
  12. DICYCLOMINE [Concomitant]
     Active Substance: DICYCLOMINE HYDROCHLORIDE
     Indication: ABDOMINAL RIGIDITY

REACTIONS (16)
  - Visual impairment [Recovered/Resolved with Sequelae]
  - Medication error [Unknown]
  - Cerebrovascular accident [Recovered/Resolved with Sequelae]
  - Fall [Recovered/Resolved]
  - Amnesia [Recovered/Resolved with Sequelae]
  - Confusional state [Unknown]
  - Colitis ulcerative [Recovering/Resolving]
  - Cataract [Recovered/Resolved]
  - Sepsis [Recovered/Resolved]
  - Pulmonary thrombosis [Recovered/Resolved]
  - Malnutrition [Recovered/Resolved]
  - Anaemia [Recovered/Resolved]
  - Balance disorder [Recovered/Resolved]
  - Weight decreased [Recovered/Resolved]
  - Cataract [Recovering/Resolving]
  - Pneumonia [Recovered/Resolved]

NARRATIVE: CASE EVENT DATE: 2017
